FAERS Safety Report 4410714-5 (Version None)
Quarter: 2004Q3

REPORT INFORMATION
  Report Type: 
  Country: None (occurrence: None)
  Receive Date: 20040728
  Receipt Date: 20040728
  Transmission Date: 20050211
  Serious: Yes (Hospitalization)
  Sender: FDA-Public Use
  Company Number: None

PATIENT
  Sex: Male
  Weight: 152 kg

DRUGS (2)
  1. GENTAMYCIN SULFATE [Suspect]
     Indication: PNEUMONIA
     Dosage: QD IV 450 MG
     Route: 042
     Dates: start: 20040603, end: 20040613
  2. VANCOMYCIN HCL [Suspect]
     Dosage: QD IV
     Route: 042

REACTIONS (2)
  - DRUG LEVEL INCREASED [None]
  - RENAL FAILURE [None]
